FAERS Safety Report 4817973-5 (Version None)
Quarter: 2005Q3

REPORT INFORMATION
  Report Type: 
  Country: None (occurrence: None)
  Receive Date: 20050929
  Receipt Date: 20050614
  Transmission Date: 20060218
  Serious: No
  Sender: FDA-Public Use
  Company Number: 05P-163-0303148-00

PATIENT
  Age: 75 Year
  Sex: Female
  Weight: 76.2043 kg

DRUGS (10)
  1. HUMIRA [Suspect]
     Indication: RHEUMATOID ARTHRITIS
     Dosage: 40 MG, 1 IN 2 WK, SUBCUTANEOUS
     Route: 058
     Dates: start: 20050530
  2. METHOTREXATE [Concomitant]
  3. FOLIC ACID [Concomitant]
  4. ZOCOR [Concomitant]
  5. LISINOPRIL [Concomitant]
  6. CELECOXIB [Concomitant]
  7. ESTROGENS CONJUGATED [Concomitant]
  8. AMITRIPTYLINE HCL [Concomitant]
  9. DEXTROPROPOXYPHENE [Concomitant]
  10. HYDROCODONE [Concomitant]

REACTIONS (1)
  - ASTHENIA [None]
